FAERS Safety Report 9907957 (Version 1)
Quarter: 2014Q1

REPORT INFORMATION
  Report Type: Report from Study
  Country: US (occurrence: US)
  Receive Date: 20140219
  Receipt Date: 20140219
  Transmission Date: 20141002
  Serious: Yes (Hospitalization)
  Sender: FDA-Public Use
  Company Number: US-ROCHE-1349797

PATIENT
  Age: 59 Year
  Sex: Male

DRUGS (7)
  1. AVASTIN [Suspect]
     Indication: LUNG NEOPLASM MALIGNANT
     Dosage: ^EVERY 21 DAYS FOR 6 CYCLES^
     Route: 065
     Dates: start: 20130905, end: 20131219
  2. CARBOPLATIN [Concomitant]
  3. PACLITAXEL [Concomitant]
  4. FAMOTIDINE [Concomitant]
     Indication: PREMEDICATION
     Route: 065
  5. BENADRYL (UNITED STATES) [Concomitant]
     Indication: PREMEDICATION
     Route: 065
  6. ALOXI [Concomitant]
     Indication: PREMEDICATION
  7. DEXAMETHASONE [Concomitant]
     Indication: PREMEDICATION

REACTIONS (1)
  - Disease progression [Unknown]
